FAERS Safety Report 4924759-X (Version None)
Quarter: 2006Q1

REPORT INFORMATION
  Report Type: 
  Country: None (occurrence: None)
  Receive Date: 20060127
  Receipt Date: 20051220
  Transmission Date: 20060701
  Serious: Yes (Other)
  Sender: FDA-Public Use
  Company Number: 2005172084

PATIENT
  Age: 73 Year
  Sex: Female
  Weight: 68.0396 kg

DRUGS (15)
  1. LYRICA [Suspect]
     Indication: NEURALGIA
     Dosage: 150 MG (50 MG, 3 IN 1 D),ORAL
     Route: 048
     Dates: start: 20051204, end: 20051204
  2. GLUCOPHAGE [Concomitant]
  3. PRECOSE [Concomitant]
  4. OXYCONTIN [Concomitant]
  5. ELAVIL [Concomitant]
  6. DICYCLOMINE [Concomitant]
  7. PLETAL [Concomitant]
  8. ECOTRIN (ACETYLSALICYLIC ACID) [Concomitant]
  9. POTASSIUM (POTASSIUM) [Concomitant]
  10. GLUCOTROL [Concomitant]
  11. PRILOSEC [Concomitant]
  12. TRIAMTERENE (TRIAMTERENE) [Concomitant]
  13. VALIUM [Concomitant]
  14. AGGRENOX [Concomitant]
  15. AVANDIA [Concomitant]

REACTIONS (5)
  - ASTHENIA [None]
  - DYSPEPSIA [None]
  - FLATULENCE [None]
  - INSOMNIA [None]
  - NEURALGIA [None]
